FAERS Safety Report 25964493 (Version 3)
Quarter: 2025Q4

REPORT INFORMATION
  Report Type: Spontaneous
  Country: JP (occurrence: JP)
  Receive Date: 20251027
  Receipt Date: 20251231
  Transmission Date: 20260117
  Serious: Yes (Other)
  Sender: GALDERMA
  Company Number: JP-GALDERMA-JP2025021302

PATIENT

DRUGS (22)
  1. NEMOLIZUMAB [Suspect]
     Active Substance: NEMOLIZUMAB
     Indication: Neurodermatitis
     Dosage: 60 MILLIGRAM EVERY 4 WEEKS
     Route: 058
     Dates: start: 20241113, end: 20241113
  2. NEMOLIZUMAB [Suspect]
     Active Substance: NEMOLIZUMAB
     Dosage: 30 MILLIGRAMS EVERY 4 WEEKS
     Route: 058
     Dates: start: 20241211, end: 20241211
  3. NEMOLIZUMAB [Suspect]
     Active Substance: NEMOLIZUMAB
     Dosage: 30 MILLIGRAMS EVERY 4 WEEKS
     Route: 058
     Dates: start: 20250108, end: 20250108
  4. NEMOLIZUMAB [Suspect]
     Active Substance: NEMOLIZUMAB
     Dosage: 30 MILLIGRAMS EVERY 4 WEEKS
     Route: 058
     Dates: start: 20250205, end: 20250205
  5. NEMOLIZUMAB [Suspect]
     Active Substance: NEMOLIZUMAB
     Dosage: 30 MILLIGRAMS EVERY 4 WEEKS
     Route: 058
     Dates: start: 20250311, end: 20250311
  6. NEMOLIZUMAB [Suspect]
     Active Substance: NEMOLIZUMAB
     Dosage: 30 MILLIGRAMS EVERY 4 WEEKS
     Route: 058
     Dates: start: 20250408, end: 20250408
  7. NEMOLIZUMAB [Suspect]
     Active Substance: NEMOLIZUMAB
     Dosage: 30 MILLIGRAMS EVERY 4 WEEKS
     Route: 058
     Dates: start: 20250514, end: 20250514
  8. NEMOLIZUMAB [Suspect]
     Active Substance: NEMOLIZUMAB
     Dosage: 30 MILLIGRAMS EVERY 4 WEEKS
     Route: 058
     Dates: start: 20250618, end: 20250618
  9. NEMOLIZUMAB [Suspect]
     Active Substance: NEMOLIZUMAB
     Dosage: 30 MILLIGRAMS EVERY 4 WEEKS
     Route: 058
     Dates: start: 20250716, end: 20250716
  10. NEMOLIZUMAB [Suspect]
     Active Substance: NEMOLIZUMAB
     Dosage: 30 MILLIGRAMS EVERY 4 WEEKS
     Route: 058
     Dates: start: 20250820, end: 20250820
  11. NEMOLIZUMAB [Suspect]
     Active Substance: NEMOLIZUMAB
     Dosage: 30 MILLIGRAMS EVERY 4 WEEKS
     Route: 058
     Dates: start: 20251010, end: 20251010
  12. GLYCOSAMINOGLYCANS [Concomitant]
     Active Substance: GLYCOSAMINOGLYCANS
     Indication: Neurodermatitis
     Dosage: 1 DOSAGE FORM
     Route: 061
     Dates: start: 20251010
  13. PROTOPIC [Concomitant]
     Active Substance: TACROLIMUS
     Indication: Neurodermatitis
     Dosage: 1 DOSAGE FORM
     Route: 061
     Dates: start: 20250108
  14. BILASTINE [Concomitant]
     Active Substance: BILASTINE
     Indication: Product used for unknown indication
     Dosage: 20 MILLIGRAM
     Route: 048
     Dates: start: 20241113
  15. DIFLORASONE DIACETATE [Concomitant]
     Active Substance: DIFLORASONE DIACETATE
     Indication: Product used for unknown indication
     Dosage: 1 DOSAGE FORM
     Route: 061
     Dates: start: 20241113
  16. CLOBETASOL [Concomitant]
     Active Substance: CLOBETASOL
     Indication: Product used for unknown indication
     Dosage: 1 DOSAGE FORM
     Route: 061
     Dates: start: 20241113
  17. CLOBETASOL [Concomitant]
     Active Substance: CLOBETASOL
     Dosage: 1 DOSAGE FORM
     Route: 061
     Dates: start: 20250618
  18. DIFLUCORTOLONE VALERATE [Concomitant]
     Active Substance: DIFLUCORTOLONE VALERATE
     Indication: Product used for unknown indication
     Dosage: 1 DOSAGE FORM
     Route: 061
     Dates: start: 20250408
  19. HEPARINOID [Concomitant]
     Indication: Product used for unknown indication
     Dosage: 1 DOSAGE FORM
     Route: 061
     Dates: start: 20250618
  20. HEPARINOID [Concomitant]
     Dosage: 1 DOSAGE FORM
     Route: 061
     Dates: start: 20250618
  21. ZINC OXIDE [Concomitant]
     Active Substance: ZINC OXIDE
     Indication: Product used for unknown indication
     Dosage: 1 DOSAGE FORM
     Route: 061
     Dates: start: 20250618
  22. BETAMETHASONE DIPROPIONATE [Concomitant]
     Active Substance: BETAMETHASONE DIPROPIONATE
     Indication: Product used for unknown indication
     Dosage: 1 DOSAGE FORM
     Route: 061
     Dates: start: 20251010

REACTIONS (5)
  - Erysipelas [Recovered/Resolved]
  - Vomiting [Recovering/Resolving]
  - Herpes zoster [Unknown]
  - Abdominal pain [Recovering/Resolving]
  - Hand dermatitis [Unknown]

NARRATIVE: CASE EVENT DATE: 20250917
